FAERS Safety Report 9706869 (Version 1)
Quarter: 2013Q4

REPORT INFORMATION
  Report Type: Report from Study
  Country: DE (occurrence: DE)
  Receive Date: 20131125
  Receipt Date: 20131125
  Transmission Date: 20140711
  Serious: Yes (Death, Other)
  Sender: FDA-Public Use
  Company Number: DE-ROCHE-1304415

PATIENT
  Age: 73 Year
  Sex: Male
  Weight: 57 kg

DRUGS (6)
  1. BEVACIZUMAB [Suspect]
     Indication: COLORECTAL CANCER METASTATIC
     Route: 042
     Dates: start: 20130610, end: 20130930
  2. ONCOFOLIC [Suspect]
     Indication: COLORECTAL CANCER METASTATIC
     Route: 042
     Dates: start: 20130603, end: 20130930
  3. 5-FLUOROURACIL [Suspect]
     Indication: COLORECTAL CANCER METASTATIC
     Route: 042
     Dates: start: 20130603, end: 20130930
  4. OXALIPLATIN [Suspect]
     Indication: COLORECTAL CANCER METASTATIC
     Route: 042
     Dates: start: 20130603, end: 20130930
  5. MCP DROPS [Concomitant]
     Indication: PROPHYLAXIS
     Route: 048
     Dates: start: 20130603, end: 20130930
  6. RANITIDIN [Concomitant]
     Indication: PROPHYLAXIS
     Route: 048
     Dates: start: 20130603, end: 20130930

REACTIONS (5)
  - General physical health deterioration [Fatal]
  - Fatigue [Fatal]
  - Cardiovascular disorder [Unknown]
  - Listless [Unknown]
  - Dizziness [Unknown]
